FAERS Safety Report 22988264 (Version 8)
Quarter: 2024Q2

REPORT INFORMATION
  Report Type: Spontaneous
  Country: US (occurrence: US)
  Receive Date: 20230926
  Receipt Date: 20240516
  Transmission Date: 20240716
  Serious: Yes (Hospitalization)
  Sender: FDA-Public Use
  Company Number: US-PFIZER INC-202300274118

PATIENT
  Age: 27 Year
  Sex: Female
  Weight: 75.75 kg

DRUGS (8)
  1. OXBRYTA [Suspect]
     Active Substance: VOXELOTOR
     Indication: Sickle cell disease
     Dosage: 500 MG, 3X/DAY
     Route: 048
     Dates: start: 20230601
  2. OXBRYTA [Suspect]
     Active Substance: VOXELOTOR
     Dosage: 1000 MG, DAILY
     Route: 048
  3. OXBRYTA [Suspect]
     Active Substance: VOXELOTOR
     Dosage: 500 MG TABLET AND I TAKE 3 (TABLETS) A DAY
     Route: 048
     Dates: start: 20230608
  4. OXBRYTA [Suspect]
     Active Substance: VOXELOTOR
     Dosage: 1000 MG, DAILY
     Route: 048
  5. OXBRYTA [Suspect]
     Active Substance: VOXELOTOR
     Dosage: 500MG, 4 TABLETS ONCE DAILY
     Route: 048
     Dates: start: 20240330
  6. HYDROXYUREA [Concomitant]
     Active Substance: HYDROXYUREA
     Indication: Sickle cell disease
     Dosage: 500 MG, 2X/DAY
     Route: 048
  7. FOLIC ACID [Concomitant]
     Active Substance: FOLIC ACID
     Indication: Sickle cell disease
     Dosage: UNK
  8. MELOXICAM [Concomitant]
     Active Substance: MELOXICAM
     Indication: Sickle cell disease
     Dosage: UNK

REACTIONS (5)
  - Sickle cell anaemia with crisis [Unknown]
  - Cholecystectomy [Unknown]
  - Off label use [Unknown]
  - Off label use [Unknown]
  - Pain [Unknown]

NARRATIVE: CASE EVENT DATE: 20230601
